FAERS Safety Report 6500868-9 (Version None)
Quarter: 2009Q4

REPORT INFORMATION
  Report Type: 
  Country: None (occurrence: None)
  Receive Date: 20091216
  Receipt Date: 20090401
  Transmission Date: 20100525
  Serious: No
  Sender: FDA-Public Use
  Company Number: A0776546A

PATIENT
  Age: 39 Year
  Sex: Male

DRUGS (1)
  1. COMMIT [Suspect]

REACTIONS (3)
  - DRY MOUTH [None]
  - ORAL DISCOMFORT [None]
  - PRODUCT QUALITY ISSUE [None]
